FAERS Safety Report 12488205 (Version 1)
Quarter: 2016Q2

REPORT INFORMATION
  Report Type: Spontaneous
  Country: GB (occurrence: GB)
  Receive Date: 20160622
  Receipt Date: 20160622
  Transmission Date: 20160815
  Serious: Yes (Life-Threatening, Hospitalization)
  Sender: FDA-Public Use
  Company Number: GB-TEVA-668522ACC

PATIENT
  Age: 4 Year
  Sex: Female
  Weight: 18 kg

DRUGS (15)
  1. TACROLIMUSMONOHYDRAT [Concomitant]
  2. CHLORAMPHENICOL [Concomitant]
     Active Substance: CHLORAMPHENICOL
  3. LENOGRASTIM [Concomitant]
     Active Substance: LENOGRASTIM
  4. CARBOPLATIN. [Suspect]
     Active Substance: CARBOPLATIN
     Indication: CHEMOTHERAPY
     Dosage: CUMULATIVE DOSE 1776MG/M2 DOSED ON GFR 10.6MG/ML.MIN
     Dates: start: 201401, end: 201407
  5. MIDAZOLAM [Concomitant]
     Active Substance: MIDAZOLAM\MIDAZOLAM HYDROCHLORIDE
  6. DOXORUBICIN [Suspect]
     Active Substance: DOXORUBICIN
     Indication: CHEMOTHERAPY
     Dosage: CUMULATIVE DOSE 330MG/M2
     Dates: start: 201401, end: 201407
  7. SALBUTAMOL [Concomitant]
     Active Substance: ALBUTEROL
  8. AMOXICILLIN. [Concomitant]
     Active Substance: AMOXICILLIN
  9. MYCOPHENOLATE MOFETIL. [Concomitant]
     Active Substance: MYCOPHENOLATE MOFETIL
     Dates: end: 20160422
  10. PARACETAMOL [Concomitant]
     Active Substance: ACETAMINOPHEN
  11. CISPLATIN. [Suspect]
     Active Substance: CISPLATIN
     Indication: CHEMOTHERAPY
     Dosage: CUMULATIVE DOSE 570MG/M2
     Dates: start: 201401, end: 201407
  12. CHLORPHENAMINE [Concomitant]
     Active Substance: CHLORPHENIRAMINE MALEATE
  13. HYDROCORTISONE. [Concomitant]
     Active Substance: HYDROCORTISONE
  14. NYSTATIN. [Concomitant]
     Active Substance: NYSTATIN
  15. PIPERACILLIN AND TAZOBACTAM [Concomitant]
     Active Substance: PIPERACILLIN SODIUM\TAZOBACTAM SODIUM

REACTIONS (5)
  - Upper respiratory tract infection [Recovered/Resolved]
  - Neutropenia [Unknown]
  - Malaise [Recovered/Resolved]
  - Lower respiratory tract infection [Recovered/Resolved]
  - Acute myeloid leukaemia [Not Recovered/Not Resolved]

NARRATIVE: CASE EVENT DATE: 201603
